FAERS Safety Report 4519433-8 (Version None)
Quarter: 2004Q4

REPORT INFORMATION
  Report Type: 
  Country: None (occurrence: None)
  Receive Date: 20041202
  Receipt Date: 20041122
  Transmission Date: 20050328
  Serious: Yes (Hospitalization)
  Sender: FDA-Public Use
  Company Number: 2004097276

PATIENT
  Age: 67 Year
  Sex: Male

DRUGS (3)
  1. LIPITOR [Suspect]
     Indication: ILL-DEFINED DISORDER
     Dosage: (40 MG)
  2. CELEBREX [Suspect]
     Indication: MYALGIA
  3. INDOMETHACIN [Concomitant]

REACTIONS (6)
  - AMNESIA [None]
  - ARTERIAL DISORDER [None]
  - CEREBRAL DISORDER [None]
  - DRUG INEFFECTIVE [None]
  - MYALGIA [None]
  - PAIN IN EXTREMITY [None]
